FAERS Safety Report 5699702-9 (Version None)
Quarter: 2008Q2

REPORT INFORMATION
  Report Type: 
  Country: None (occurrence: None)
  Receive Date: 20080410
  Receipt Date: 20080403
  Transmission Date: 20081010
  Serious: Yes (Hospitalization)
  Sender: FDA-Public Use
  Company Number: PHNU2008DE01456

PATIENT
  Age: 67 Year
  Sex: Female

DRUGS (3)
  1. RASILEZ [Suspect]
     Dosage: 1 DF, QD
     Route: 048
     Dates: start: 20080402
  2. LISINOPRIL [Concomitant]
     Dosage: 20 MG/D
     Dates: end: 20080402
  3. BISOPROLOL FUMARATE [Concomitant]
     Dosage: 5 MG, BID
     Dates: end: 20080402

REACTIONS (1)
  - ATRIAL FIBRILLATION [None]
